FAERS Safety Report 17373330 (Version 2)
Quarter: 2020Q1

REPORT INFORMATION
  Report Type: Report from Study
  Country: BR (occurrence: BR)
  Receive Date: 20200205
  Receipt Date: 20200305
  Transmission Date: 20200409
  Serious: Yes (Other)
  Sender: FDA-Public Use
  Company Number: PHHY2019BR105643

PATIENT
  Age: 67 Year
  Sex: Female
  Weight: 70 kg

DRUGS (6)
  1. COSENTYX [Suspect]
     Active Substance: SECUKINUMAB
     Dosage: UNK
     Route: 065
     Dates: start: 201904
  2. COSENTYX [Suspect]
     Active Substance: SECUKINUMAB
     Dosage: UNK
     Route: 058
     Dates: start: 20190425
  3. COSENTYX [Suspect]
     Active Substance: SECUKINUMAB
     Indication: PSORIATIC ARTHROPATHY
     Dosage: 300 MG, QW (EVERY 7 DAYS)
     Route: 058
     Dates: start: 20190405, end: 20190503
  4. COSENTYX [Suspect]
     Active Substance: SECUKINUMAB
     Dosage: UNK
     Route: 058
     Dates: start: 20190503, end: 20200101
  5. COSENTYX [Suspect]
     Active Substance: SECUKINUMAB
     Dosage: UNK
     Route: 065
     Dates: start: 20190412
  6. COSENTYX [Suspect]
     Active Substance: SECUKINUMAB
     Dosage: UNK
     Route: 058
     Dates: start: 20190418

REACTIONS (16)
  - Swollen tongue [Recovering/Resolving]
  - Swollen tongue [Recovered/Resolved]
  - Conjunctivitis [Recovered/Resolved]
  - Mouth ulceration [Unknown]
  - Oral candidiasis [Recovered/Resolved]
  - Eye pain [Recovered/Resolved]
  - Vision blurred [Recovered/Resolved]
  - Speech disorder [Unknown]
  - Oral candidiasis [Recovering/Resolving]
  - Candida infection [Not Recovered/Not Resolved]
  - Vision blurred [Recovered/Resolved]
  - Conjunctivitis [Not Recovered/Not Resolved]
  - Oesophageal candidiasis [Recovering/Resolving]
  - Eye pain [Recovered/Resolved]
  - Pharyngeal swelling [Unknown]
  - Aphonia [Unknown]

NARRATIVE: CASE EVENT DATE: 20190412
